FAERS Safety Report 22747052 (Version 3)
Quarter: 2025Q3

REPORT INFORMATION
  Report Type: Spontaneous
  Country: US (occurrence: US)
  Receive Date: 20230725
  Receipt Date: 20250710
  Transmission Date: 20251021
  Serious: Yes (Other)
  Sender: JAZZ
  Company Number: US-JAZZ PHARMACEUTICALS-2023-US-015461

PATIENT

DRUGS (1)
  1. RYLAZE [Suspect]
     Active Substance: ASPARAGINASE ERWINIA CHRYSANTHEMI (RECOMBINANT)-RYWN
     Indication: Product used for unknown indication

REACTIONS (1)
  - Cerebral venous sinus thrombosis [Unknown]
